FAERS Safety Report 9363704 (Version 3)
Quarter: 2013Q3

REPORT INFORMATION
  Report Type: Spontaneous
  Country: US (occurrence: None)
  Receive Date: 20130618
  Receipt Date: 20130925
  Transmission Date: 20140515
  Serious: Yes (Hospitalization, Other)
  Sender: FDA-Public Use
  Company Number: AUR-APL-2013-04981

PATIENT
  Age: 57 Year
  Sex: Female

DRUGS (19)
  1. LOSARTAN [Suspect]
     Indication: HYPERTENSION
     Route: 048
     Dates: start: 20130226, end: 20130313
  2. METFORMIN (METFORMIN) [Suspect]
     Indication: PRODUCT USED FOR UNKNOWN INDICATION
     Dates: end: 201202
  3. POTASSIUM CHLORIDE (POTASSIUM CHLORIDE) [Suspect]
     Indication: PRODUCT USED FOR UNKNOWN INDICATION
  4. AMLODIPINE [Concomitant]
  5. ASPIRIN [Concomitant]
  6. ATORVASTATIN [Concomitant]
  7. CELLCEPT [Concomitant]
  8. PLAVIX [Concomitant]
  9. EFEXOR XR [Concomitant]
  10. ESOMEPRAZOLE [Concomitant]
  11. FLUTICASONE [Concomitant]
  12. DROCHLOROTHIAZIDE [Concomitant]
  13. LANTUS [Concomitant]
  14. LEVOTHYROXINE [Concomitant]
  15. LORAZEPAM [Concomitant]
  16. LYRICA [Concomitant]
  17. PLAQUENIL [Concomitant]
  18. METOPROLOL [Concomitant]
  19. COLECALCIFEROL [Concomitant]

REACTIONS (8)
  - Hypersensitivity [None]
  - Urticaria [None]
  - Erythema [None]
  - Pruritus [None]
  - Burning sensation [None]
  - Angioedema [None]
  - Renal failure acute [None]
  - Drug hypersensitivity [None]
